FAERS Safety Report 8472213-3 (Version None)
Quarter: 2012Q2

REPORT INFORMATION
  Report Type: 
  Country: None (occurrence: None)
  Receive Date: 20120627
  Receipt Date: 20120615
  Transmission Date: 20120825
  Serious: Yes (Other)
  Sender: FDA-Public Use
  Company Number: US-ELI_LILLY_AND_COMPANY-US201109005789

PATIENT
  Sex: Female

DRUGS (14)
  1. FORTEO [Suspect]
     Indication: OSTEOPOROSIS
     Dosage: 20 UG, QD
     Route: 065
     Dates: start: 20110914
  2. EFFEXOR [Concomitant]
     Dosage: 75 MG, QD
  3. CO-Q10 [Concomitant]
     Dosage: UNK
  4. FORTEO [Suspect]
     Dosage: 20 UG, QD
  5. GABAPENTIN [Concomitant]
     Dosage: 300 MG, TID
  6. VITAMIN D [Concomitant]
     Dosage: UNK
  7. XANAX [Concomitant]
     Dosage: 0.5 MG, PRN
  8. WELLBUTRIN [Concomitant]
     Dosage: 100 MG, TID
  9. MULTI-VITAMIN [Concomitant]
     Dosage: UNK
  10. VITAMIN B-12 [Concomitant]
     Dosage: UNK
  11. PILOCARPINE [Concomitant]
     Dosage: 7.5 MG, TID
  12. TOPIRAMATE [Concomitant]
     Dosage: 50 MG, UNK
  13. CALCIUM [Concomitant]
     Dosage: UNK
  14. FLEXERIL [Concomitant]
     Dosage: 10 MG, PRN

REACTIONS (8)
  - INCORRECT DOSE ADMINISTERED [None]
  - HYPOAESTHESIA ORAL [None]
  - MALAISE [None]
  - VIITH NERVE PARALYSIS [None]
  - TRANSIENT ISCHAEMIC ATTACK [None]
  - NERVOUSNESS [None]
  - FATIGUE [None]
  - HYPOAESTHESIA [None]
